FAERS Safety Report 20053981 (Version 1)
Quarter: 2021Q4

REPORT INFORMATION
  Report Type: Spontaneous
  Country: US (occurrence: None)
  Receive Date: 20211110
  Receipt Date: 20211110
  Transmission Date: 20220303
  Serious: Yes (Other)
  Sender: FDA-Public Use
  Company Number: None

PATIENT
  Age: 34 Year
  Sex: Female
  Weight: 84.5 kg

DRUGS (1)
  1. REGEN-COV [Suspect]
     Active Substance: CASIRIVIMAB\IMDEVIMAB
     Indication: SARS-CoV-2 test positive
     Dates: start: 20211108, end: 20211108

REACTIONS (4)
  - Chest discomfort [None]
  - Nausea [None]
  - Hypotension [None]
  - Hypersensitivity [None]

NARRATIVE: CASE EVENT DATE: 20211108
